FAERS Safety Report 6892056-1 (Version None)
Quarter: 2010Q3

REPORT INFORMATION
  Report Type: 
  Country: None (occurrence: None)
  Receive Date: 20100731
  Receipt Date: 20080104
  Transmission Date: 20110219
  Serious: No
  Sender: FDA-Public Use
  Company Number: US-PFIZER INC-2008001541

PATIENT
  Sex: Female
  Weight: 59.1 kg

DRUGS (3)
  1. FLAGYL [Suspect]
     Indication: BACTERIAL INFECTION
     Dates: start: 20071223, end: 20080102
  2. XALATAN [Concomitant]
     Indication: GLAUCOMA
  3. MULTI-VITAMINS [Concomitant]

REACTIONS (7)
  - ARTHRALGIA [None]
  - DRUG INTOLERANCE [None]
  - DYSGEUSIA [None]
  - HEADACHE [None]
  - INSOMNIA [None]
  - NAUSEA [None]
  - PARAESTHESIA [None]
